FAERS Safety Report 23888500 (Version 1)
Quarter: 2024Q2

REPORT INFORMATION
  Report Type: Spontaneous
  Country: US (occurrence: None)
  Receive Date: 20240522
  Receipt Date: 20240522
  Transmission Date: 20240716
  Serious: Yes (Other)
  Sender: FDA-Public Use
  Company Number: None

PATIENT
  Sex: 0

DRUGS (2)
  1. DROPERIDOL [Suspect]
     Active Substance: DROPERIDOL
     Indication: Migraine
     Dates: start: 20240521, end: 20240521
  2. TRAZODONE [Suspect]
     Active Substance: TRAZODONE HYDROCHLORIDE

REACTIONS (4)
  - Restlessness [None]
  - Palpitations [None]
  - Paraesthesia [None]
  - Paraesthesia oral [None]

NARRATIVE: CASE EVENT DATE: 20240521
